FAERS Safety Report 5901867-8 (Version None)
Quarter: 2008Q3

REPORT INFORMATION
  Report Type: 
  Country: None (occurrence: None)
  Receive Date: 20080929
  Receipt Date: 20080220
  Transmission Date: 20090109
  Serious: Yes (Hospitalization)
  Sender: FDA-Public Use
  Company Number: JP-BAYER-200810076BYL

PATIENT
  Age: 56 Year
  Sex: Male

DRUGS (5)
  1. FLUDARA [Suspect]
     Indication: CHRONIC LYMPHOCYTIC LEUKAEMIA
     Dosage: UNIT DOSE: 10 MG
     Route: 048
     Dates: start: 20071212, end: 20071216
  2. RITUXAN [Concomitant]
     Route: 042
     Dates: start: 20071217
  3. COTRIM [Concomitant]
     Route: 048
     Dates: start: 20071207, end: 20080130
  4. PROTECADIN [Concomitant]
     Route: 048
     Dates: start: 20071207, end: 20080130
  5. ZYLORIC [Concomitant]
     Route: 048
     Dates: start: 20071212, end: 20071218

REACTIONS (1)
  - PANCYTOPENIA [None]
